FAERS Safety Report 9228191 (Version 2)
Quarter: 2013Q2

REPORT INFORMATION
  Report Type: Report from Study
  Country: US (occurrence: US)
  Receive Date: 20130412
  Receipt Date: 20130520
  Transmission Date: 20140414
  Serious: Yes (Hospitalization, Other)
  Sender: FDA-Public Use
  Company Number: US-ABBOTT-13P-163-1072380-00

PATIENT
  Age: 39 Year
  Sex: Female
  Weight: 79.9 kg

DRUGS (13)
  1. HUMIRA [Suspect]
     Indication: CROHN^S DISEASE
  2. HUMIRA [Suspect]
     Dates: start: 20130322
  3. LOPERAMIDE [Concomitant]
     Indication: DIARRHOEA
     Dosage: 2 MG DAILY
  4. BUSPIRONE [Concomitant]
     Indication: DEPRESSION
  5. XANAX [Concomitant]
     Indication: ANXIETY
  6. MERCAPTOPURINE [Concomitant]
     Indication: CROHN^S DISEASE
     Dosage: 50 MG DAILY
  7. NEXIUM [Concomitant]
     Indication: GASTROOESOPHAGEAL REFLUX DISEASE
     Dosage: 40 MG DAILY
  8. PROZAC [Concomitant]
     Indication: DEPRESSION
  9. MS CONTIN [Concomitant]
     Indication: PAIN
  10. MORPHINE SULFATE [Concomitant]
     Indication: PAIN
  11. LASIX [Concomitant]
     Indication: FLUID RETENTION
     Dosage: 20 MG DAILY
  12. ABILIFY [Concomitant]
     Indication: DEPRESSION
     Dosage: AT BEDTIME
  13. 6-MP [Concomitant]
     Indication: PRODUCT USED FOR UNKNOWN INDICATION

REACTIONS (7)
  - Hernia [Unknown]
  - Ileostomy closure [Unknown]
  - Ileostomy [Recovered/Resolved]
  - Crohn^s disease [Unknown]
  - Nausea [Unknown]
  - Vomiting [Unknown]
  - Drug ineffective [Unknown]
